FAERS Safety Report 6004748-7 (Version None)
Quarter: 2008Q4

REPORT INFORMATION
  Report Type: 
  Country: None (occurrence: None)
  Receive Date: 20081216
  Receipt Date: 20081202
  Transmission Date: 20090506
  Serious: No
  Sender: FDA-Public Use
  Company Number: US-B.I. PHARMACEUTICALS,INC./RIDGEFIELD-2008-BP-18104BP

PATIENT
  Age: 58 Year
  Sex: Male

DRUGS (1)
  1. FLOMAX [Suspect]
     Dosage: .4MG
     Route: 048
     Dates: start: 20081101

REACTIONS (2)
  - CHEST PAIN [None]
  - MUSCLE SPASMS [None]
